FAERS Safety Report 5018984-X (Version None)
Quarter: 2006Q2

REPORT INFORMATION
  Report Type: 
  Country: None (occurrence: None)
  Receive Date: 20060606
  Receipt Date: 20030501
  Transmission Date: 20061013
  Serious: Yes (Other)
  Sender: FDA-Public Use
  Company Number: US-GLAXOSMITHKLINE-A0607373A

PATIENT
  Sex: Female
  Weight: 59.5 kg

DRUGS (5)
  1. LOTRONEX [Suspect]
     Indication: DRUG USE FOR UNKNOWN INDICATION
     Dosage: 1MG TWICE PER DAY
     Route: 048
  2. PEPCID [Concomitant]
  3. SINEQUAN [Concomitant]
  4. PREMARIN [Concomitant]
  5. NICOTROL [Concomitant]

REACTIONS (7)
  - ABDOMINAL PAIN UPPER [None]
  - CHOLECYSTITIS [None]
  - CONSTIPATION [None]
  - DIARRHOEA [None]
  - GALLBLADDER DISORDER [None]
  - GASTROINTESTINAL INJURY [None]
  - NAUSEA [None]
